FAERS Safety Report 19816484 (Version 1)
Quarter: 2021Q3

REPORT INFORMATION
  Report Type: Spontaneous
  Country: FI (occurrence: FI)
  Receive Date: 20210910
  Receipt Date: 20210910
  Transmission Date: 20211014
  Serious: Yes (Hospitalization)
  Sender: FDA-Public Use
  Company Number: FI-BAYER-2021-209262

PATIENT
  Age: 16 Year
  Sex: Female

DRUGS (1)
  1. YAZ [Suspect]
     Active Substance: DROSPIRENONE\ETHINYL ESTRADIOL
     Indication: CONTRACEPTION
     Dosage: 1 DF, QD
     Route: 048
     Dates: start: 202101, end: 202102

REACTIONS (4)
  - Trichorrhexis [Recovered/Resolved with Sequelae]
  - Alopecia areata [Recovered/Resolved with Sequelae]
  - Self esteem decreased [Recovered/Resolved with Sequelae]
  - Hair growth abnormal [Recovered/Resolved with Sequelae]

NARRATIVE: CASE EVENT DATE: 202102
